FAERS Safety Report 6016739-0 (Version None)
Quarter: 2008Q4

REPORT INFORMATION
  Report Type: 
  Country: None (occurrence: None)
  Receive Date: 20081222
  Receipt Date: 20081216
  Transmission Date: 20090506
  Serious: Yes (Hospitalization)
  Sender: FDA-Public Use
  Company Number: US-ROXANE LABORATORIES, INC.-2008-RO-00444RO

PATIENT
  Sex: Female

DRUGS (3)
  1. METHADONE HCL [Suspect]
  2. VIVITROL [Suspect]
     Dosage: 380MG
     Route: 030
  3. UNSPECIFIED MEDICATIONS [Concomitant]

REACTIONS (3)
  - DRUG WITHDRAWAL SYNDROME [None]
  - IRRITABLE BOWEL SYNDROME [None]
  - LIPASE INCREASED [None]
